FAERS Safety Report 7198181-2 (Version None)
Quarter: 2010Q4

REPORT INFORMATION
  Report Type: 
  Country: None (occurrence: None)
  Receive Date: 20101227
  Receipt Date: 20101213
  Transmission Date: 20110411
  Serious: Yes (Hospitalization)
  Sender: FDA-Public Use
  Company Number: PHHY2010JP84166

PATIENT
  Age: 73 Year
  Sex: Male
  Weight: 59.5 kg

DRUGS (9)
  1. TEGRETOL [Suspect]
     Indication: EPILEPSY
     Dosage: 300 MG, QD
     Route: 048
     Dates: start: 20101018, end: 20101115
  2. GLYSENNID [Concomitant]
     Dosage: UNK
     Route: 048
     Dates: start: 20101115
  3. FLIVAS [Concomitant]
     Dosage: UNK
     Route: 048
     Dates: start: 20100115
  4. CONSTAN [Concomitant]
     Dosage: UNK
     Route: 048
     Dates: start: 20100115
  5. HERBESSER ^DELTA^ [Concomitant]
     Dosage: UNK
     Route: 048
     Dates: start: 20101115
  6. MUCOSTA [Concomitant]
     Dosage: UNK
     Route: 048
     Dates: start: 20101115
  7. FLUITRAN [Concomitant]
     Dosage: UNK
     Route: 048
     Dates: start: 20101115
  8. HALCION [Concomitant]
     Dosage: UNK
     Route: 048
     Dates: start: 20101115
  9. FORSENID [Concomitant]
     Dosage: UNK
     Route: 048
     Dates: start: 20101115

REACTIONS (4)
  - DIZZINESS [None]
  - DRUG TOXICITY [None]
  - HEPATIC FUNCTION ABNORMAL [None]
  - HYPOAESTHESIA [None]
